FAERS Safety Report 18359425 (Version 1)
Quarter: 2020Q4

REPORT INFORMATION
  Report Type: Spontaneous
  Country: US (occurrence: US)
  Receive Date: 20201008
  Receipt Date: 20201008
  Transmission Date: 20210114
  Serious: Yes (Hospitalization, Disabling)
  Sender: FDA-Public Use
  Company Number: None

PATIENT
  Age: 59 Year
  Sex: Female
  Weight: 112.5 kg

DRUGS (2)
  1. TOPAMAX [Suspect]
     Active Substance: TOPIRAMATE
     Indication: HEADACHE
     Dates: start: 20050101, end: 20100101
  2. ABILIFY MAINTENA [Suspect]
     Active Substance: ARIPIPRAZOLE
     Indication: SCHIZOPHRENIA
     Dates: start: 20160501, end: 20180301

REACTIONS (7)
  - Visual impairment [None]
  - Thyroidectomy [None]
  - Liver injury [None]
  - Thinking abnormal [None]
  - Illness [None]
  - Anosognosia [None]
  - Psychotic disorder [None]

NARRATIVE: CASE EVENT DATE: 20200510
